FAERS Safety Report 7928876-1 (Version None)
Quarter: 2011Q4

REPORT INFORMATION
  Report Type: 
  Country: None (occurrence: None)
  Receive Date: 20111118
  Receipt Date: 20111104
  Transmission Date: 20120403
  Serious: Yes (Hospitalization, Other)
  Sender: FDA-Public Use
  Company Number: GR-JUTA GMBH-2011-17240

PATIENT
  Age: 21 Year
  Sex: Male

DRUGS (2)
  1. RISPERIDONE [Suspect]
     Indication: PRODUCT USED FOR UNKNOWN INDICATION
     Dosage: 2 MG, UNK
     Route: 065
  2. OLANZAPINE [Suspect]
     Indication: SUICIDAL IDEATION
     Dosage: UNK

REACTIONS (2)
  - TOURETTE'S DISORDER [None]
  - DYSTONIA [None]
